FAERS Safety Report 6869588-5 (Version None)
Quarter: 2010Q3

REPORT INFORMATION
  Report Type: 
  Country: None (occurrence: None)
  Receive Date: 20100722
  Receipt Date: 20080805
  Transmission Date: 20110219
  Serious: No
  Sender: FDA-Public Use
  Company Number: US-PFIZER INC-2008065712

PATIENT
  Sex: Female
  Weight: 31.818 kg

DRUGS (7)
  1. CHANTIX [Suspect]
     Indication: SMOKING CESSATION THERAPY
     Route: 048
     Dates: start: 20080727, end: 20080803
  2. THEOPHYLLINE [Concomitant]
     Route: 048
  3. KLONOPIN [Concomitant]
     Route: 048
  4. DILANTIN [Concomitant]
     Route: 048
  5. CLARITIN [Concomitant]
     Route: 048
  6. ALL OTHER THERAPEUTIC PRODUCTS [Concomitant]
     Route: 048
  7. FOSAMAX [Concomitant]
     Route: 048

REACTIONS (2)
  - ASTHENIA [None]
  - DIZZINESS [None]
